FAERS Safety Report 9267910 (Version 1)
Quarter: 2013Q2

REPORT INFORMATION
  Report Type: Spontaneous
  Country: IT (occurrence: IT)
  Receive Date: 20130502
  Receipt Date: 20130502
  Transmission Date: 20140414
  Serious: Yes (Other)
  Sender: FDA-Public Use
  Company Number: IT-MYLANLABS-2013S1008726

PATIENT
  Age: 33 Year
  Sex: Female

DRUGS (3)
  1. FLUOROURACIL [Suspect]
     Indication: COLON CANCER METASTATIC
     Dosage: PART OF FOLFIRI; CYCLES REPEATED EVERY 2W
     Route: 065
  2. IRINOTECAN [Suspect]
     Indication: COLON CANCER METASTATIC
     Dosage: PART OF FOLFIRI; CYCLES REPEATED EVERY 2W
     Route: 065
  3. FOLINIC ACID [Suspect]
     Indication: COLON CANCER METASTATIC
     Dosage: PART OF FOLFIRI; CYCLES REPEATED EVERY 2W
     Route: 065

REACTIONS (8)
  - Foetal growth restriction [Unknown]
  - No adverse event [Recovered/Resolved]
  - Normal newborn [Recovered/Resolved]
  - Nausea [Unknown]
  - Constipation [Unknown]
  - Maternal exposure during pregnancy [Recovered/Resolved]
  - Intestinal perforation [None]
  - Caesarean section [None]
